FAERS Safety Report 16527204 (Version 1)
Quarter: 2019Q3

REPORT INFORMATION
  Report Type: Report from Study
  Country: US (occurrence: US)
  Receive Date: 20190703
  Receipt Date: 20190703
  Transmission Date: 20191004
  Serious: Yes (Other)
  Sender: FDA-Public Use
  Company Number: US-JNJFOC-20190537434

PATIENT
  Sex: Female

DRUGS (2)
  1. IMBRUVICA [Suspect]
     Active Substance: IBRUTINIB
     Route: 048
     Dates: start: 20190504
  2. IMBRUVICA [Suspect]
     Active Substance: IBRUTINIB
     Indication: CHRONIC LYMPHOCYTIC LEUKAEMIA
     Route: 048
     Dates: start: 20190418

REACTIONS (10)
  - Arthritis [Not Recovered/Not Resolved]
  - Blood thyroid stimulating hormone increased [Unknown]
  - Haematoma [Unknown]
  - Fall [Unknown]
  - White blood cell count increased [Unknown]
  - Tri-iodothyronine decreased [Unknown]
  - Orthostatic hypotension [Recovered/Resolved]
  - Platelet count increased [Unknown]
  - Neutrophil count abnormal [Unknown]
  - Frustration tolerance decreased [Unknown]
